FAERS Safety Report 8083352-3 (Version None)
Quarter: 2012Q1

REPORT INFORMATION
  Report Type: 
  Country: None (occurrence: None)
  Receive Date: 20120127
  Receipt Date: 20110201
  Transmission Date: 20120608
  Serious: No
  Sender: FDA-Public Use
  Company Number: US-ABBOTT-11P-163-0697832-00

PATIENT
  Sex: Male
  Weight: 93.524 kg

DRUGS (11)
  1. FISH OIL [Concomitant]
     Indication: CARDIAC DISORDER
  2. ASPIRIN [Concomitant]
     Indication: CORONARY ARTERIAL STENT INSERTION
  3. TERAZOSIN HCL [Concomitant]
     Indication: PRODUCT USED FOR UNKNOWN INDICATION
  4. DIOVAN [Concomitant]
     Indication: HYPERTENSION
  5. FOLBEE VITAMIN [Concomitant]
     Indication: VITAMIN SUPPLEMENTATION
  6. VITAMIN D [Concomitant]
     Indication: HYPOVITAMINOSIS
  7. ATENOLOL [Concomitant]
     Indication: CORONARY ARTERIAL STENT INSERTION
  8. TIMOLOL MALEATE [Concomitant]
     Indication: GLAUCOMA
  9. CLOBETASOL [Concomitant]
     Indication: PRODUCT USED FOR UNKNOWN INDICATION
  10. HUMIRA [Suspect]
     Indication: PSORIASIS
     Dates: start: 20100101, end: 20101231
  11. PHYTOSTEROLS [Concomitant]
     Indication: BLOOD CHOLESTEROL INCREASED

REACTIONS (5)
  - PRURITUS [None]
  - RASH PAPULAR [None]
  - HEAT RASH [None]
  - RASH MACULAR [None]
  - RASH [None]
